FAERS Safety Report 5146564-4 (Version None)
Quarter: 2006Q4

REPORT INFORMATION
  Report Type: 
  Country: None (occurrence: None)
  Receive Date: 20061109
  Receipt Date: 20061104
  Transmission Date: 20070319
  Serious: Yes (Hospitalization)
  Sender: FDA-Public Use
  Company Number: BR-BRISTOL-MYERS SQUIBB COMPANY-13567987

PATIENT
  Age: 54 Year
  Sex: Male

DRUGS (2)
  1. MAXIPIME [Suspect]
     Indication: BRONCHITIS ACUTE
  2. PROGRAF [Concomitant]

REACTIONS (8)
  - CONFUSIONAL STATE [None]
  - CONVULSION [None]
  - DISORIENTATION [None]
  - DYSKINESIA [None]
  - MUSCLE SPASMS [None]
  - PAIN [None]
  - SPEECH DISORDER [None]
  - VISUAL DISTURBANCE [None]
